FAERS Safety Report 9112632 (Version 1)
Quarter: 2013Q1

REPORT INFORMATION
  Report Type: Spontaneous
  Country: FR (occurrence: FR)
  Receive Date: 20130211
  Receipt Date: 20130211
  Transmission Date: 20140127
  Serious: Yes (Hospitalization)
  Sender: FDA-Public Use
  Company Number: PHHY2013FR008982

PATIENT
  Age: 89 Year
  Sex: Female

DRUGS (7)
  1. TAREG [Suspect]
     Dates: end: 20121117
  2. COTAREG [Suspect]
     Route: 048
     Dates: start: 20121117, end: 20121123
  3. FUROSEMIDE [Concomitant]
     Dosage: 40 MG, QD
     Route: 048
     Dates: start: 20121102, end: 20121106
  4. NEURONTIN [Concomitant]
     Dosage: 2 DF, QD
     Route: 048
     Dates: start: 2011
  5. KEPPRA [Concomitant]
     Dosage: 4 DF, QD (500 MG)
     Route: 048
     Dates: start: 2011
  6. LOXEN [Concomitant]
     Dosage: LONG TIME AGO
     Route: 048
  7. VITABACT [Concomitant]
     Dosage: LONG TIME AGO
     Route: 048

REACTIONS (8)
  - Hyponatraemia [Recovered/Resolved]
  - Confusional state [Unknown]
  - Nausea [Unknown]
  - Asthenia [Unknown]
  - Hypokalaemia [Recovered/Resolved]
  - Urticaria [Recovered/Resolved]
  - Rash [Recovered/Resolved]
  - Pruritus [Unknown]
